FAERS Safety Report 6399615-3 (Version None)
Quarter: 2009Q4

REPORT INFORMATION
  Report Type: 
  Country: None (occurrence: None)
  Receive Date: 20091014
  Receipt Date: 20091006
  Transmission Date: 20100525
  Serious: Yes (Disabling)
  Sender: FDA-Public Use
  Company Number: KR-ASTRAZENECA-2009SE18158

PATIENT
  Age: 80 Year
  Sex: Male

DRUGS (1)
  1. MARCAINE [Suspect]
     Indication: LOCAL ANAESTHESIA
     Route: 037

REACTIONS (1)
  - CAUDA EQUINA SYNDROME [None]
